FAERS Safety Report 24154277 (Version 1)
Quarter: 2024Q3

REPORT INFORMATION
  Report Type: Other
  Country: CN (occurrence: CN)
  Receive Date: 20240730
  Receipt Date: 20240730
  Transmission Date: 20241017
  Serious: Yes (Hospitalization, Other)
  Sender: BIONPHARMA
  Company Number: CN-Bion-013544

PATIENT
  Age: 8 Year
  Sex: Female

DRUGS (13)
  1. DEXAMETHASONE [Suspect]
     Active Substance: DEXAMETHASONE
     Indication: Epstein-Barr virus infection
     Dosage: 10 MG/M2
  2. ETOPOSIDE [Concomitant]
     Active Substance: ETOPOSIDE
     Indication: Epstein-Barr virus infection
     Dosage: 150 MG/M2
  3. RUXOLITINIB [Concomitant]
     Active Substance: RUXOLITINIB
     Indication: Epstein-Barr virus infection
     Dosage: 10MG
     Route: 048
  4. EMAPALUMAB [Concomitant]
     Active Substance: EMAPALUMAB
     Indication: Epstein-Barr virus infection
     Dosage: 2 MG/KG INITIAL DOSE
  5. DEXAMETHASONE [Suspect]
     Active Substance: DEXAMETHASONE
     Indication: Haemophagocytic lymphohistiocytosis
     Dosage: 10 MG/M2
  6. DEXAMETHASONE [Suspect]
     Active Substance: DEXAMETHASONE
     Indication: Epstein-Barr virus infection
     Dosage: 5 MG/M2
  7. DEXAMETHASONE [Suspect]
     Active Substance: DEXAMETHASONE
     Indication: Haemophagocytic lymphohistiocytosis
     Dosage: 5 MG/M2
  8. RUXOLITINIB [Concomitant]
     Active Substance: RUXOLITINIB
     Indication: Haemophagocytic lymphohistiocytosis
     Dosage: 10MG
     Route: 048
  9. RUXOLITINIB [Concomitant]
     Active Substance: RUXOLITINIB
     Indication: Cytokine storm
     Dosage: 10MG
     Route: 048
  10. ETOPOSIDE [Concomitant]
     Active Substance: ETOPOSIDE
     Indication: Haemophagocytic lymphohistiocytosis
     Dosage: 150 MG/M2
  11. EMAPALUMAB [Concomitant]
     Active Substance: EMAPALUMAB
     Indication: Haemophagocytic lymphohistiocytosis
     Dosage: 2 MG/KG
  12. EMAPALUMAB [Concomitant]
     Active Substance: EMAPALUMAB
     Indication: Epstein-Barr virus infection
     Dosage: SECOND DOSE OF 4 MG/KG THREE DAYS LATER
  13. EMAPALUMAB [Concomitant]
     Active Substance: EMAPALUMAB
     Indication: Haemophagocytic lymphohistiocytosis
     Dosage: SECOND DOSE OF 4 MG/KG THREE DAYS LATER

REACTIONS (3)
  - Aspergillus infection [Unknown]
  - Acinetobacter infection [Unknown]
  - Multiple organ dysfunction syndrome [Unknown]
